FAERS Safety Report 12944820 (Version 1)
Quarter: 2016Q4

REPORT INFORMATION
  Report Type: Spontaneous
  Country: US (occurrence: US)
  Receive Date: 20161116
  Receipt Date: 20161116
  Transmission Date: 20170207
  Serious: No
  Sender: FDA-Public Use
  Company Number: US-JNJFOC-20161013482

PATIENT
  Sex: Female
  Weight: 53.52 kg

DRUGS (6)
  1. WOMENS ROGAINE UNSCENTED [Suspect]
     Active Substance: MINOXIDIL
     Route: 061
  2. WOMENS ROGAINE UNSCENTED [Suspect]
     Active Substance: MINOXIDIL
     Indication: ALOPECIA
     Dosage: 1/2 CAPFUL
     Route: 061
  3. ZYRTEC [Concomitant]
     Active Substance: CETIRIZINE HYDROCHLORIDE
     Indication: HYPERSENSITIVITY
     Route: 065
  4. NEXIUM [Concomitant]
     Active Substance: ESOMEPRAZOLE MAGNESIUM
     Indication: GASTROOESOPHAGEAL REFLUX DISEASE
     Route: 065
  5. CRESTOR [Concomitant]
     Active Substance: ROSUVASTATIN CALCIUM
     Indication: BLOOD CHOLESTEROL INCREASED
     Dosage: 10 YEARS
     Route: 065
  6. BIOTIN [Concomitant]
     Active Substance: BIOTIN
     Indication: ROUTINE HEALTH MAINTENANCE
     Route: 065

REACTIONS (6)
  - Product use issue [Unknown]
  - Alopecia [Not Recovered/Not Resolved]
  - Pain of skin [Not Recovered/Not Resolved]
  - Product closure removal difficult [Unknown]
  - Intentional product misuse [Unknown]
  - Product container issue [Unknown]
